FAERS Safety Report 9299375 (Version 2)
Quarter: 2013Q4

REPORT INFORMATION
  Report Type: Spontaneous
  Country: US (occurrence: US)
  Receive Date: 20130520
  Receipt Date: 20131105
  Transmission Date: 20140711
  Serious: Yes (Hospitalization)
  Sender: FDA-Public Use
  Company Number: US-B.I. PHARMACEUTICALS,INC./RIDGEFIELD-2013-BI-13766BP

PATIENT
  Age: 90 Year
  Sex: Male
  Weight: 98.88 kg

DRUGS (10)
  1. PRADAXA [Suspect]
     Indication: ANTICOAGULANT THERAPY
     Dosage: 150 MG
     Route: 048
     Dates: start: 20111007, end: 20120329
  2. PRADAXA [Suspect]
     Indication: ATRIAL FIBRILLATION
  3. LASIX [Concomitant]
     Dosage: 40 MG
     Route: 048
  4. LEVOTHYROID [Concomitant]
     Dosage: 50 MCG
     Route: 048
  5. GLIPIZIDE [Concomitant]
     Dosage: 5 MG
     Route: 048
  6. LOVASTATIN [Concomitant]
     Dosage: 20 MG
     Route: 048
  7. VITAMIN D [Concomitant]
  8. CALCIUM [Concomitant]
  9. MULTI B [Concomitant]
  10. FISH OIL [Concomitant]

REACTIONS (3)
  - Penile haemorrhage [Unknown]
  - Urethral injury [Unknown]
  - Coagulopathy [Unknown]
